FAERS Safety Report 8418033 (Version 2)
Quarter: 2012Q4

REPORT INFORMATION
  Report Type: 
  Country: GR (occurrence: GR)
  Receive Date: 20120221
  Receipt Date: 20120913
  Transmission Date: 20130627
  Serious: Yes (Disabling)
  Sender: FDA-Public Use
  Company Number: GR-AMGEN-GRCSP2012010276

PATIENT
  Age: 50 Year
  Sex: Female

DRUGS (3)
  1. PROLIA [Suspect]
     Indication: OSTEOPOROSIS
     Dosage: 60 mg, q6mo
     Dates: start: 20120214
  2. ANTIVOM                            /00141802/ [Concomitant]
     Indication: DIZZINESS
  3. DEPON [Concomitant]

REACTIONS (5)
  - Tachycardia [Recovered/Resolved]
  - Discomfort [Recovered/Resolved]
  - Pain in jaw [Recovered/Resolved]
  - Asthenia [Recovered/Resolved]
  - Dyspnoea [Recovered/Resolved]
